FAERS Safety Report 8379517-3 (Version None)
Quarter: 2012Q2

REPORT INFORMATION
  Report Type: 
  Country: None (occurrence: None)
  Receive Date: 20120523
  Receipt Date: 20120515
  Transmission Date: 20120825
  Serious: Yes (Hospitalization)
  Sender: FDA-Public Use
  Company Number: JP-JNJFOC-20120204802

PATIENT
  Sex: Male

DRUGS (2)
  1. STELARA [Suspect]
     Indication: PSORIASIS
     Route: 058
     Dates: start: 20120126
  2. STELARA [Suspect]
     Route: 058
     Dates: start: 20110206

REACTIONS (3)
  - LUNG NEOPLASM [None]
  - CARDIAC FAILURE [None]
  - PLEURAL EFFUSION [None]
